FAERS Safety Report 14884548 (Version 4)
Quarter: 2018Q2

REPORT INFORMATION
  Report Type: Spontaneous
  Country: US (occurrence: US)
  Receive Date: 20180511
  Receipt Date: 20180618
  Transmission Date: 20180711
  Serious: Yes (Life-Threatening, Hospitalization)
  Sender: FDA-Public Use
  Company Number: US-ACTELION-A-US2018-171599

PATIENT
  Age: 58 Year
  Sex: Female
  Weight: 148.75 kg

DRUGS (12)
  1. ASCORBIC ACID. [Concomitant]
     Active Substance: ASCORBIC ACID
  2. AZELASTINE. [Concomitant]
     Active Substance: AZELASTINE HYDROCHLORIDE
     Dosage: UNK
     Dates: start: 20180208
  3. UPTRAVI [Suspect]
     Active Substance: SELEXIPAG
     Dosage: UNK
     Route: 048
     Dates: start: 20171206
  4. PRAMIPEXOLE. [Concomitant]
     Active Substance: PRAMIPEXOLE
     Dosage: UNK
     Dates: start: 20170225
  5. SPIRONOLACTONE. [Concomitant]
     Active Substance: SPIRONOLACTONE
     Dosage: UNK
     Dates: start: 20171103
  6. VELETRI [Suspect]
     Active Substance: EPOPROSTENOL
     Indication: PULMONARY ARTERIAL HYPERTENSION
     Dosage: 11 NG/KG, PER MIN
     Route: 042
     Dates: start: 20180512
  7. UPTRAVI [Suspect]
     Active Substance: SELEXIPAG
     Indication: PULMONARY ARTERIAL HYPERTENSION
     Dosage: 1600 MCG, BID
     Route: 048
     Dates: start: 20180415, end: 20180514
  8. OPSUMIT [Suspect]
     Active Substance: MACITENTAN
     Indication: PULMONARY ARTERIAL HYPERTENSION
     Dosage: 10 MG, QD
     Route: 048
     Dates: start: 20171005
  9. NORETHINDRONE. [Concomitant]
     Active Substance: NORETHINDRONE
     Dosage: UNK
     Dates: start: 20170629
  10. SILDENAFIL. [Concomitant]
     Active Substance: SILDENAFIL
  11. FOLIC ACID. [Concomitant]
     Active Substance: FOLIC ACID
     Dosage: UNK
     Dates: start: 20170501
  12. ALBUTEROL. [Concomitant]
     Active Substance: ALBUTEROL

REACTIONS (16)
  - Post procedural discharge [Unknown]
  - Headache [Unknown]
  - Abdominal pain upper [Unknown]
  - Hernia [Unknown]
  - Pulmonary arterial hypertension [Not Recovered/Not Resolved]
  - Ear pain [Unknown]
  - Nausea [Unknown]
  - Eye pain [Unknown]
  - Blood pressure decreased [Recovered/Resolved]
  - Large intestinal obstruction [Unknown]
  - Tinnitus [Recovered/Resolved]
  - Unevaluable event [Recovered/Resolved]
  - Large intestine perforation [Unknown]
  - Condition aggravated [Not Recovered/Not Resolved]
  - Constipation [Unknown]
  - Bone pain [Unknown]

NARRATIVE: CASE EVENT DATE: 2018
